FAERS Safety Report 20379273 (Version 3)
Quarter: 2022Q3

REPORT INFORMATION
  Report Type: Report from Study
  Country: JP (occurrence: JP)
  Receive Date: 20220126
  Receipt Date: 20220922
  Transmission Date: 20221026
  Serious: Yes (Life-Threatening, Other)
  Sender: FDA-Public Use
  Company Number: JP-MSD-M2021-27154

PATIENT
  Age: 63 Year
  Sex: Male
  Weight: 67 kg

DRUGS (3)
  1. PEMBROLIZUMAB [Suspect]
     Active Substance: PEMBROLIZUMAB
     Indication: Renal cell carcinoma stage IV
     Dosage: 200 MILLIGRAM, Q3W
     Route: 041
     Dates: start: 20211109, end: 20220120
  2. AXITINIB [Suspect]
     Active Substance: AXITINIB
     Indication: Renal cell carcinoma stage IV
     Dosage: 5 MILLIGRAM, BID
     Route: 048
     Dates: start: 20211109, end: 20211129
  3. AXITINIB [Suspect]
     Active Substance: AXITINIB
     Dosage: 3 MILLIGRAM, BID
     Route: 048
     Dates: start: 20211130, end: 20220101

REACTIONS (3)
  - Liver disorder [Recovering/Resolving]
  - Malignant neoplasm progression [Unknown]
  - Hypertension [Recovered/Resolved]

NARRATIVE: CASE EVENT DATE: 20211111
